FAERS Safety Report 7249015-9 (Version None)
Quarter: 2011Q1

REPORT INFORMATION
  Report Type: 
  Country: None (occurrence: None)
  Receive Date: 20110128
  Receipt Date: 20101014
  Transmission Date: 20110831
  Serious: Yes (Other)
  Sender: FDA-Public Use
  Company Number: US-BAYER-201021910NA

PATIENT
  Sex: Female
  Weight: 46.818 kg

DRUGS (21)
  1. ADVAIR [Concomitant]
     Dosage: 100-50 DISKUS
     Route: 055
     Dates: start: 20060101
  2. YAZ [Suspect]
     Indication: CONTRACEPTION
     Dosage: UNK
     Route: 048
     Dates: start: 20061101, end: 20090201
  3. PHENERGAN [Concomitant]
     Dosage: 25 MG Q4-6 H
  4. LEVONORGESTREL + ETHINYL ESTRADIOL [Concomitant]
     Dosage: UNK
     Dates: start: 20080313
  5. IMITREX [Concomitant]
     Indication: MIGRAINE
     Route: 048
     Dates: start: 20060101
  6. GLUCOPHAGE [Concomitant]
     Dosage: 500 MG, QD
     Route: 048
     Dates: start: 20070901
  7. ASCORBIC ACID [Concomitant]
     Dosage: USED ON NUMEROUS OCCASIONS FOR PAST 10 YEARS^
     Dates: start: 20000101
  8. WELLBUTRIN [Concomitant]
     Indication: ANXIETY
     Route: 048
     Dates: start: 20080101
  9. PAROXETINE HCL [Concomitant]
     Indication: ANXIETY
     Dosage: 10 MG TAB 1.5 TAB QD
     Route: 048
     Dates: start: 20061101
  10. CYCLOBENZAPRINE [Concomitant]
     Dosage: 30 DAYS
     Route: 048
     Dates: start: 20080118
  11. PRILOSEC [Concomitant]
     Dosage: OTC
     Route: 048
     Dates: start: 20080220
  12. ZOLOFT [Concomitant]
     Indication: ANXIETY
     Dosage: 100 MG TAB 1.5 TAB AT BEDTIME
     Route: 048
     Dates: start: 20061201, end: 20080101
  13. BACTRIM [Concomitant]
     Dosage: DS TABS 1 TAB Q12H, 3 DAYS
     Route: 048
     Dates: start: 20080205
  14. PRILOSEC [Concomitant]
     Route: 048
  15. NAPROXEN [Concomitant]
     Route: 048
     Dates: start: 20060101
  16. TOPAMAX [Concomitant]
     Indication: MIGRAINE
     Route: 048
     Dates: start: 20060101
  17. TOPAMAX [Concomitant]
     Dosage: 200 MG (DAILY DOSE), ,
  18. SINGULAIR [Concomitant]
     Route: 048
     Dates: start: 20070201
  19. DARVOCET [Concomitant]
     Indication: ANALGESIC THERAPY
     Dosage: 50 - 325 TAB
     Route: 048
     Dates: start: 20080222
  20. PROMETHAZINE [Concomitant]
     Indication: MULTIPLE ALLERGIES
     Route: 048
     Dates: start: 20080219
  21. TOPICORT [Concomitant]
     Indication: RASH
     Dosage: UNK
     Route: 061
     Dates: start: 20080219

REACTIONS (1)
  - CHOLECYSTITIS CHRONIC [None]
